FAERS Safety Report 21839270 (Version 5)
Quarter: 2023Q4

REPORT INFORMATION
  Report Type: Report from Study
  Country: US (occurrence: US)
  Receive Date: 20230109
  Receipt Date: 20231205
  Transmission Date: 20240110
  Serious: Yes (Hospitalization, Other)
  Sender: FDA-Public Use
  Company Number: US-002147023-NVSC2023US003861

PATIENT
  Sex: Female

DRUGS (1)
  1. ENTRESTO [Suspect]
     Active Substance: SACUBITRIL\VALSARTAN
     Indication: Cardiac failure congestive
     Dosage: 1 DOSAGE FORM, BID
     Route: 048
     Dates: start: 20220907

REACTIONS (6)
  - Neoplasm malignant [Unknown]
  - Cardiac failure congestive [Recovering/Resolving]
  - Peripheral swelling [Unknown]
  - Heart rate irregular [Unknown]
  - Lung disorder [Unknown]
  - Oedema peripheral [Unknown]
